FAERS Safety Report 4348423-3 (Version None)
Quarter: 2004Q1

REPORT INFORMATION
  Report Type: 
  Country: None (occurrence: None)
  Receive Date: 20040325
  Receipt Date: 20031205
  Transmission Date: 20041129
  Serious: No
  Sender: FDA-Public Use
  Company Number: USA031050278

PATIENT
  Age: 46 Year
  Sex: Female
  Weight: 82 kg

DRUGS (1)
  1. FORTEO [Suspect]
     Indication: OSTEOPOROSIS
     Dates: start: 20030901, end: 20031127

REACTIONS (4)
  - FORMICATION [None]
  - PRURITUS GENERALISED [None]
  - RESTLESS LEGS SYNDROME [None]
  - SKIN LACERATION [None]
